FAERS Safety Report 4721928-9 (Version None)
Quarter: 2005Q3

REPORT INFORMATION
  Report Type: 
  Country: None (occurrence: None)
  Receive Date: 20050720
  Receipt Date: 20050707
  Transmission Date: 20060218
  Serious: Yes (Death)
  Sender: FDA-Public Use
  Company Number: GBWYE208617NOV04

PATIENT
  Sex: Female

DRUGS (2)
  1. GEMTUZUMAB OZOGAMICIN (GEMTUZUMAB OZOGAMICIN, INJECTION) [Suspect]
     Dates: start: 20031126
  2. CYTARABINE [Suspect]

REACTIONS (3)
  - DYSPNOEA [None]
  - KLEBSIELLA INFECTION [None]
  - RESPIRATORY ARREST [None]
